FAERS Safety Report 24787432 (Version 1)
Quarter: 2024Q4

REPORT INFORMATION
  Report Type: Spontaneous
  Country: GB (occurrence: GB)
  Receive Date: 20241230
  Receipt Date: 20241230
  Transmission Date: 20250115
  Serious: Yes (Other)
  Sender: ALMUS
  Company Number: GB-MHRA-34276757

PATIENT

DRUGS (1)
  1. KLISYRI [Suspect]
     Active Substance: TIRBANIBULIN
     Dosage: 10 MG/G OINTMENT

REACTIONS (5)
  - Skin exfoliation [Unknown]
  - Erythema [Unknown]
  - Pruritus [Unknown]
  - Scab [Unknown]
  - Skin texture abnormal [Unknown]
